FAERS Safety Report 6431566-8 (Version None)
Quarter: 2009Q4

REPORT INFORMATION
  Report Type: 
  Country: None (occurrence: None)
  Receive Date: 20091103
  Receipt Date: 20091028
  Transmission Date: 20100525
  Serious: Yes (Hospitalization)
  Sender: FDA-Public Use
  Company Number: 2009SP024987

PATIENT
  Age: 22 Year
  Sex: Male
  Weight: 65 kg

DRUGS (15)
  1. PEG-INTRON [Suspect]
     Indication: HEPATITIS C
     Dosage: 100 MCG;QW;SC
     Route: 058
     Dates: start: 20090615, end: 20090907
  2. REBETOL [Suspect]
     Indication: HEPATITIS C
     Dosage: 800 MG;QD;PO;  1200 MG;QD;PO;  1600 MG;ONCE, PO; 800 MG; ONCE;PO;  2000 MG;ONCE;PO
     Route: 048
     Dates: start: 20090615, end: 20090701
  3. REBETOL [Suspect]
     Indication: HEPATITIS C
     Dosage: 800 MG;QD;PO;  1200 MG;QD;PO;  1600 MG;ONCE, PO; 800 MG; ONCE;PO;  2000 MG;ONCE;PO
     Route: 048
     Dates: end: 20090801
  4. REBETOL [Suspect]
     Indication: HEPATITIS C
     Dosage: 800 MG;QD;PO;  1200 MG;QD;PO;  1600 MG;ONCE, PO; 800 MG; ONCE;PO;  2000 MG;ONCE;PO
     Route: 048
     Dates: end: 20090831
  5. REBETOL [Suspect]
     Indication: HEPATITIS C
     Dosage: 800 MG;QD;PO;  1200 MG;QD;PO;  1600 MG;ONCE, PO; 800 MG; ONCE;PO;  2000 MG;ONCE;PO
     Route: 048
     Dates: start: 20090901, end: 20090905
  6. REBETOL [Suspect]
     Indication: HEPATITIS C
     Dosage: 800 MG;QD;PO;  1200 MG;QD;PO;  1600 MG;ONCE, PO; 800 MG; ONCE;PO;  2000 MG;ONCE;PO
     Route: 048
     Dates: start: 20090906, end: 20090906
  7. REBETOL [Suspect]
     Indication: HEPATITIS C
     Dosage: 800 MG;QD;PO;  1200 MG;QD;PO;  1600 MG;ONCE, PO; 800 MG; ONCE;PO;  2000 MG;ONCE;PO
     Route: 048
     Dates: start: 20090907
  8. REBETOL [Suspect]
     Indication: HEPATITIS C
     Dosage: 800 MG;QD;PO;  1200 MG;QD;PO;  1600 MG;ONCE, PO; 800 MG; ONCE;PO;  2000 MG;ONCE;PO
     Route: 048
     Dates: start: 20090907
  9. PROMAC D [Concomitant]
  10. LOCHOL [Concomitant]
  11. LENDORMIN D [Concomitant]
  12. ROHYPNOL [Concomitant]
  13. DEPAS [Concomitant]
  14. LOXONIN [Concomitant]
  15. SILECE [Concomitant]

REACTIONS (3)
  - DELIRIUM [None]
  - OVERDOSE [None]
  - PSYCHOMOTOR HYPERACTIVITY [None]
